FAERS Safety Report 24350398 (Version 1)
Quarter: 2024Q3

REPORT INFORMATION
  Report Type: Spontaneous
  Country: US (occurrence: None)
  Receive Date: 20240922
  Receipt Date: 20240922
  Transmission Date: 20241017
  Serious: Yes (Hospitalization)
  Sender: Public
  Company Number: None

PATIENT
  Age: 8 Year
  Sex: Male

DRUGS (3)
  1. REBINYN [Suspect]
     Active Substance: COAGULATION FACTOR IX (RECOMBINANT), GLYCOPEGYLATED
     Indication: Factor IX deficiency
     Dosage: 1000U EVERY WEEK INTRAVENOUS?
     Route: 042
     Dates: start: 202304
  2. AMINOCAPROIC ACID [Concomitant]
     Active Substance: AMINOCAPROIC ACID
  3. BENEFIX [Concomitant]

REACTIONS (2)
  - Fall [None]
  - Haemarthrosis [None]

NARRATIVE: CASE EVENT DATE: 20240901
